FAERS Safety Report 7889355-3 (Version None)
Quarter: 2011Q4

REPORT INFORMATION
  Report Type: 
  Country: None (occurrence: None)
  Receive Date: 20111103
  Receipt Date: 20111026
  Transmission Date: 20120403
  Serious: Yes (Life-Threatening, Disabling)
  Sender: FDA-Public Use
  Company Number: US-BAYER-2011-104751

PATIENT
  Sex: Female

DRUGS (3)
  1. AVELOX [Suspect]
     Indication: ERYTHEMA
     Dosage: UNK
     Route: 048
     Dates: start: 20111005, end: 20111005
  2. AVELOX [Suspect]
     Indication: SKIN DISORDER
  3. AVELOX [Suspect]
     Indication: SWELLING

REACTIONS (1)
  - ANAPHYLACTIC SHOCK [None]
